FAERS Safety Report 6337077-2 (Version None)
Quarter: 2009Q3

REPORT INFORMATION
  Report Type: 
  Country: None (occurrence: None)
  Receive Date: 20090831
  Receipt Date: 20090819
  Transmission Date: 20100115
  Serious: Yes (Death)
  Sender: FDA-Public Use
  Company Number: 2009AP003384

PATIENT
  Age: 53 Year
  Sex: Female

DRUGS (6)
  1. TRAMADOL HYDROCHLORIDE [Suspect]
     Dosage: 650 MG; TID
  2. GABAPENTIN [Suspect]
     Dosage: 300 MG; 6XD
  3. CETIRIZINE HYDROCHLORIDE [Suspect]
     Dosage: 10 MG; QD
  4. MODAFINIL [Suspect]
     Dosage: 200 MG; BID
  5. XYREM [Suspect]
     Dosage: 7.5 GM;HS;
  6. CARISOPRODOL [Suspect]
     Dosage: 350 MG;HS

REACTIONS (6)
  - ACCIDENTAL OVERDOSE [None]
  - DRUG INTERACTION [None]
  - DRUG LEVEL ABOVE THERAPEUTIC [None]
  - DRUG TOXICITY [None]
  - SNORING [None]
  - UNRESPONSIVE TO STIMULI [None]
